FAERS Safety Report 17979325 (Version 2)
Quarter: 2020Q3

REPORT INFORMATION
  Report Type: Spontaneous
  Country: US (occurrence: US)
  Receive Date: 20200703
  Receipt Date: 20200708
  Transmission Date: 20201103
  Serious: No
  Sender: FDA-Public Use
  Company Number: US-ASTRAZENECA-2020SE64860

PATIENT
  Age: 73 Year
  Sex: Female
  Weight: 40.4 kg

DRUGS (11)
  1. BEVESPI AEROSPHERE [Suspect]
     Active Substance: FORMOTEROL FUMARATE\GLYCOPYRROLATE
     Indication: CHRONIC OBSTRUCTIVE PULMONARY DISEASE
     Dosage: 9/4.8 MCGS 2 PUFFS TWICE DAILY
     Route: 055
     Dates: start: 202001
  2. BEVESPI AEROSPHERE [Suspect]
     Active Substance: FORMOTEROL FUMARATE\GLYCOPYRROLATE
     Indication: CHRONIC OBSTRUCTIVE PULMONARY DISEASE
     Dosage: 9/4.8 MCG; 2 PUFFS TWO TIMES A DAY
     Route: 055
     Dates: start: 202004
  3. CVS SENOKOT [Concomitant]
     Indication: CONSTIPATION
     Dosage: TWO TIMES A DAY
     Route: 048
     Dates: start: 20200511
  4. SERTALIN [Concomitant]
     Indication: ANXIETY
     Route: 048
     Dates: start: 2014
  5. COLACE [Concomitant]
     Active Substance: DOCUSATE SODIUM
     Indication: CONSTIPATION
     Dosage: UNKNOWN
     Route: 048
  6. BEVESPI AEROSPHERE [Suspect]
     Active Substance: FORMOTEROL FUMARATE\GLYCOPYRROLATE
     Indication: CHRONIC OBSTRUCTIVE PULMONARY DISEASE
     Dosage: 9/4.8 MCGS 2 PUFFS TWICE DAILY
     Route: 055
     Dates: start: 202003
  7. NICORETTE [Concomitant]
     Active Substance: NICOTINE
     Route: 065
  8. MIRTAZAPINE. [Concomitant]
     Active Substance: MIRTAZAPINE
     Indication: ANTIDEPRESSANT THERAPY
     Route: 048
     Dates: start: 202001
  9. BEVESPI AEROSPHERE [Suspect]
     Active Substance: FORMOTEROL FUMARATE\GLYCOPYRROLATE
     Indication: CHRONIC OBSTRUCTIVE PULMONARY DISEASE
     Dosage: TWO TIMES A DAY
     Route: 055
     Dates: start: 201901
  10. CENTRUM SILVER [Concomitant]
     Active Substance: MINERALS\VITAMINS
     Indication: NUTRITIONAL SUPPLEMENTATION
     Route: 048
  11. OLANZAPINE. [Concomitant]
     Active Substance: OLANZAPINE
     Indication: ANTIDEPRESSANT THERAPY
     Route: 048
     Dates: start: 202001

REACTIONS (6)
  - Tic [Unknown]
  - Device issue [Unknown]
  - Intentional device misuse [Not Recovered/Not Resolved]
  - Circumstance or information capable of leading to medication error [Unknown]
  - Wrong technique in device usage process [Unknown]
  - Incorrect dose administered by device [Unknown]

NARRATIVE: CASE EVENT DATE: 202003
